FAERS Safety Report 8254942-X (Version None)
Quarter: 2012Q2

REPORT INFORMATION
  Report Type: 
  Country: None (occurrence: None)
  Receive Date: 20120403
  Receipt Date: 20120328
  Transmission Date: 20120825
  Serious: No
  Sender: FDA-Public Use
  Company Number: US-PFIZER INC-2012080031

PATIENT
  Sex: Female
  Weight: 48.073 kg

DRUGS (6)
  1. FENTANYL [Concomitant]
     Dosage: UNK
  2. CYTOTEC [Suspect]
     Indication: GASTRIC ULCER
     Dosage: 200 UG, 3X/DAY
     Route: 048
     Dates: start: 20080101
  3. CELEBREX [Suspect]
     Dosage: 200 MG, 1X/DAY
     Route: 048
  4. NEURONTIN [Suspect]
     Dosage: 800 MG, 3X/DAY
     Route: 048
  5. CYMBALTA [Concomitant]
     Dosage: UNK
  6. ADDERALL XR 10 [Concomitant]
     Dosage: UNK

REACTIONS (1)
  - DIARRHOEA [None]
